FAERS Safety Report 24738901 (Version 1)
Quarter: 2024Q4

REPORT INFORMATION
  Report Type: Spontaneous
  Country: US (occurrence: US)
  Receive Date: 20241216
  Receipt Date: 20241216
  Transmission Date: 20250115
  Serious: No
  Sender: ALVOGEN
  Company Number: US-ALVOGEN-2024093306

PATIENT
  Sex: Female

DRUGS (1)
  1. FENTANYL [Suspect]
     Active Substance: FENTANYL
     Indication: Pain management
     Dosage: EXPIRATION DATE: UU-AUG-2026?STRENGTH: 25 MCG/HR TO BE CHANGED EVERY 3 DAYS
     Route: 062
     Dates: start: 20240307

REACTIONS (3)
  - Device adhesion issue [Unknown]
  - Device malfunction [Unknown]
  - Wrong technique in device usage process [Unknown]
